FAERS Safety Report 6342254-0 (Version None)
Quarter: 2009Q3

REPORT INFORMATION
  Report Type: 
  Country: None (occurrence: None)
  Receive Date: 20090907
  Receipt Date: 20071126
  Transmission Date: 20100115
  Serious: Yes (Hospitalization, Other)
  Sender: FDA-Public Use
  Company Number: US-ASTRAZENECA-2006UW12041

PATIENT
  Age: 21434 Day
  Sex: Female
  Weight: 88.9 kg

DRUGS (9)
  1. SEROQUEL [Suspect]
     Indication: DEPRESSION
     Dosage: 100 MG DAILY, TITRATING 100 MG AT BEDTIME
     Route: 048
     Dates: start: 20050526
  2. SEROQUEL [Suspect]
     Indication: ANXIETY
     Dosage: 100 MG DAILY, TITRATING 100 MG AT BEDTIME
     Route: 048
     Dates: start: 20050526
  3. SEROQUEL [Suspect]
     Route: 048
     Dates: start: 20050702, end: 20060501
  4. SEROQUEL [Suspect]
     Route: 048
     Dates: start: 20050702, end: 20060501
  5. AMITRIPTYLINE [Concomitant]
     Dates: start: 20040106
  6. DARVOCET-N 100 [Concomitant]
     Route: 048
     Dates: start: 20050222
  7. LISINOPRIL [Concomitant]
     Dates: start: 20050612
  8. NEURONTIN [Concomitant]
     Dosage: 100 - 900 MG
     Dates: start: 20050322
  9. PREDNISONE [Concomitant]
     Dosage: 10 - 20 MG
     Dates: start: 20050222

REACTIONS (13)
  - ACUTE RESPIRATORY DISTRESS SYNDROME [None]
  - CARDIAC FAILURE CONGESTIVE [None]
  - COMA [None]
  - CORONARY ARTERIAL STENT INSERTION [None]
  - DIABETES MELLITUS [None]
  - DIABETIC NEUROPATHIC ULCER [None]
  - DIABETIC NEUROPATHY [None]
  - HYPERGLYCAEMIA [None]
  - HYPERTENSION [None]
  - MONONEUROPATHY [None]
  - PNEUMONIA [None]
  - POLYNEUROPATHY [None]
  - TYPE 2 DIABETES MELLITUS [None]
